FAERS Safety Report 21552516 (Version 6)
Quarter: 2023Q1

REPORT INFORMATION
  Report Type: Report from Study
  Country: US (occurrence: US)
  Receive Date: 20221104
  Receipt Date: 20230207
  Transmission Date: 20230418
  Serious: No
  Sender: FDA-Public Use
  Company Number: US-002147023-NVSC2022US247944

PATIENT
  Sex: Female

DRUGS (1)
  1. COSENTYX [Suspect]
     Active Substance: SECUKINUMAB
     Indication: Psoriasis
     Dosage: 300 MG, QMO
     Route: 058

REACTIONS (3)
  - COVID-19 [Unknown]
  - Condition aggravated [Unknown]
  - Therapeutic response shortened [Unknown]
